FAERS Safety Report 7475156-7 (Version None)
Quarter: 2011Q2

REPORT INFORMATION
  Report Type: 
  Country: None (occurrence: None)
  Receive Date: 20110509
  Receipt Date: 20110509
  Transmission Date: 20111010
  Serious: Yes (Hospitalization)
  Sender: FDA-Public Use
  Company Number: None

PATIENT
  Age: 90 Year
  Sex: Male
  Weight: 61.2356 kg

DRUGS (1)
  1. PRADAXA [Suspect]
     Indication: CEREBROVASCULAR ACCIDENT PROPHYLAXIS
     Dosage: 1 CAPSULE TWICE DAILY PO
     Route: 048
     Dates: start: 20110411, end: 20110414

REACTIONS (3)
  - DYSPHAGIA [None]
  - PROTHROMBIN TIME PROLONGED [None]
  - OESOPHAGEAL HAEMORRHAGE [None]
